FAERS Safety Report 25060269 (Version 1)
Quarter: 2025Q1

REPORT INFORMATION
  Report Type: Spontaneous
  Country: US (occurrence: US)
  Receive Date: 20250310
  Receipt Date: 20250310
  Transmission Date: 20250408
  Serious: No
  Sender: CIPLA
  Company Number: US-CIPLA LTD.-2025US02694

PATIENT

DRUGS (2)
  1. ALBUTEROL [Suspect]
     Active Substance: ALBUTEROL
     Indication: Ill-defined disorder
     Dosage: 180 MICROGRAM, BID (2 PUFFS, TWICE), 2 INHALERS
     Route: 065
     Dates: start: 20250219
  2. ALBUTEROL [Suspect]
     Active Substance: ALBUTEROL
     Dosage: 180 MICROGRAM, BID (2 PUFFS, TWICE)
     Route: 065
     Dates: start: 202502

REACTIONS (3)
  - Drug dose omission by device [Unknown]
  - Device mechanical issue [Unknown]
  - Device delivery system issue [Unknown]

NARRATIVE: CASE EVENT DATE: 20250220
